FAERS Safety Report 26137080 (Version 1)
Quarter: 2025Q4

REPORT INFORMATION
  Report Type: Spontaneous
  Country: EU (occurrence: EU)
  Receive Date: 20251209
  Receipt Date: 20251209
  Transmission Date: 20260117
  Serious: Yes (Hospitalization)
  Sender: MYLAN
  Company Number: None

PATIENT
  Age: 64 Year
  Sex: Male
  Weight: 47 kg

DRUGS (12)
  1. PACLITAXEL [Suspect]
     Active Substance: PACLITAXEL
     Indication: Squamous cell carcinoma of lung
     Dosage: 220 MILLIGRAM, Q21D
     Dates: start: 20250722, end: 20250722
  2. PACLITAXEL [Suspect]
     Active Substance: PACLITAXEL
     Dosage: 220 MILLIGRAM, Q21D
     Route: 042
     Dates: start: 20250722, end: 20250722
  3. PACLITAXEL [Suspect]
     Active Substance: PACLITAXEL
     Dosage: 220 MILLIGRAM, Q21D
     Route: 042
     Dates: start: 20250722, end: 20250722
  4. PACLITAXEL [Suspect]
     Active Substance: PACLITAXEL
     Dosage: 220 MILLIGRAM, Q21D
     Dates: start: 20250722, end: 20250722
  5. CARBOPLATIN [Suspect]
     Active Substance: CARBOPLATIN
     Indication: Squamous cell carcinoma of lung
     Dosage: 360 MILLIGRAM, Q21D
     Dates: start: 20250722, end: 20250722
  6. CARBOPLATIN [Suspect]
     Active Substance: CARBOPLATIN
     Dosage: 360 MILLIGRAM, Q21D
     Route: 042
     Dates: start: 20250722, end: 20250722
  7. CARBOPLATIN [Suspect]
     Active Substance: CARBOPLATIN
     Dosage: 360 MILLIGRAM, Q21D
     Route: 042
     Dates: start: 20250722, end: 20250722
  8. CARBOPLATIN [Suspect]
     Active Substance: CARBOPLATIN
     Dosage: 360 MILLIGRAM, Q21D
     Dates: start: 20250722, end: 20250722
  9. PEMBROLIZUMAB [Suspect]
     Active Substance: PEMBROLIZUMAB
     Indication: Squamous cell carcinoma of lung
     Dosage: 200 MILLIGRAM, Q21D
     Dates: start: 20250722, end: 20250722
  10. PEMBROLIZUMAB [Suspect]
     Active Substance: PEMBROLIZUMAB
     Dosage: 200 MILLIGRAM, Q21D
     Route: 042
     Dates: start: 20250722, end: 20250722
  11. PEMBROLIZUMAB [Suspect]
     Active Substance: PEMBROLIZUMAB
     Dosage: 200 MILLIGRAM, Q21D
     Route: 042
     Dates: start: 20250722, end: 20250722
  12. PEMBROLIZUMAB [Suspect]
     Active Substance: PEMBROLIZUMAB
     Dosage: 200 MILLIGRAM, Q21D
     Dates: start: 20250722, end: 20250722

REACTIONS (2)
  - Hepatic cytolysis [Recovering/Resolving]
  - Cholestasis [Recovering/Resolving]

NARRATIVE: CASE EVENT DATE: 20250811
